FAERS Safety Report 6096873-X (Version None)
Quarter: 2009Q1

REPORT INFORMATION
  Report Type: 
  Country: None (occurrence: None)
  Receive Date: 20090225
  Receipt Date: 20090225
  Transmission Date: 20090719
  Serious: Yes (Hospitalization)
  Sender: FDA-Public Use
  Company Number: None

PATIENT
  Age: 37 Year
  Sex: Male

DRUGS (1)
  1. SULFAMETHOXAZOLE AND TRIMETHOPRIM [Suspect]
     Indication: INFECTION
     Dosage: 1 TAB BID PO
     Route: 048
     Dates: start: 20090218, end: 20090224

REACTIONS (8)
  - BLOOD URINE PRESENT [None]
  - CONDITION AGGRAVATED [None]
  - DRUG ERUPTION [None]
  - DYSURIA [None]
  - FLANK PAIN [None]
  - MYALGIA [None]
  - PYREXIA [None]
  - VOMITING [None]
